FAERS Safety Report 5526143-7 (Version None)
Quarter: 2007Q4

REPORT INFORMATION
  Report Type: 
  Country: None (occurrence: None)
  Receive Date: 20071120
  Receipt Date: 20071109
  Transmission Date: 20080405
  Serious: Yes (Other)
  Sender: FDA-Public Use
  Company Number: 2007-03768

PATIENT
  Age: 54 Year
  Sex: Female
  Weight: 67 kg

DRUGS (3)
  1. VELCADE [Suspect]
     Indication: DRUG USE FOR UNKNOWN INDICATION
     Dosage: 4.00 MG, INTRAVENOUS
     Route: 042
     Dates: start: 20040112, end: 20040304
  2. ALLOPURINOL [Concomitant]
  3. CLODRONATE DISOSIUM (CLODRONATE DISODIUM) [Concomitant]

REACTIONS (1)
  - ERYTHEMA MULTIFORME [None]
